FAERS Safety Report 16016356 (Version 1)
Quarter: 2019Q1

REPORT INFORMATION
  Report Type: Spontaneous
  Country: US (occurrence: US)
  Receive Date: 20190227
  Receipt Date: 20190227
  Transmission Date: 20190418
  Serious: Yes (Life-Threatening, Disabling)
  Sender: FDA-Public Use
  Company Number: None

PATIENT
  Age: 47 Year
  Sex: Female
  Weight: 54 kg

DRUGS (2)
  1. LORATADINE. [Concomitant]
     Active Substance: LORATADINE
  2. AZITHROMYCIN ANHYDROUS. [Suspect]
     Active Substance: AZITHROMYCIN ANHYDROUS
     Indication: BACTERIAL INFECTION
     Dosage: ?          QUANTITY:5 CAPSULE(S);?
     Route: 048
     Dates: start: 20190219, end: 20190223

REACTIONS (4)
  - Suicidal ideation [None]
  - Depression [None]
  - Intentional self-injury [None]
  - Fear [None]

NARRATIVE: CASE EVENT DATE: 20190219
